FAERS Safety Report 4910157-1 (Version None)
Quarter: 2006Q1

REPORT INFORMATION
  Report Type: 
  Country: None (occurrence: None)
  Receive Date: 20060209
  Receipt Date: 20060123
  Transmission Date: 20060701
  Serious: Yes (Hospitalization)
  Sender: FDA-Public Use
  Company Number: US200601003922

PATIENT
  Sex: Male

DRUGS (3)
  1. HUMALOG [Suspect]
     Indication: DIABETES MELLITUS
     Dosage: 4/D, SUBCUTANEOUS
     Route: 058
  2. HUMALOG PEN (HUMALOG PEN) PEN, DISPOSABLE [Concomitant]
  3. LANTUS [Concomitant]

REACTIONS (3)
  - ATRIAL FIBRILLATION [None]
  - OESOPHAGEAL CARCINOMA [None]
  - VOMITING [None]
